FAERS Safety Report 6991765-3 (Version None)
Quarter: 2010Q3

REPORT INFORMATION
  Report Type: 
  Country: None (occurrence: None)
  Receive Date: 20100917
  Receipt Date: 20100903
  Transmission Date: 20110219
  Serious: No
  Sender: FDA-Public Use
  Company Number: US-PFIZER INC-2010112386

PATIENT
  Sex: Male
  Weight: 95.238 kg

DRUGS (3)
  1. LYRICA [Suspect]
     Indication: NEURALGIA
     Dosage: 75 MG, DAILY
     Route: 048
     Dates: start: 20100824, end: 20100824
  2. AMLODIPINE BESYLATE AND BENAZEPRIL HCL [Concomitant]
     Indication: HYPERTENSION
     Dosage: [AMLODIPINE 10 MG]/[BENAZEPRIL 20 MG], ONCE DAY
  3. VALTREX [Concomitant]
     Dosage: 1000 MG, UNK

REACTIONS (5)
  - DRUG INEFFECTIVE [None]
  - EYE MOVEMENT DISORDER [None]
  - NAUSEA [None]
  - PAIN [None]
  - VISION BLURRED [None]
